FAERS Safety Report 8183589-9 (Version None)
Quarter: 2012Q1

REPORT INFORMATION
  Report Type: 
  Country: None (occurrence: None)
  Receive Date: 20120201
  Receipt Date: 20110318
  Transmission Date: 20120608
  Serious: Yes (Other)
  Sender: FDA-Public Use
  Company Number: 272113USA

PATIENT
  Sex: Male

DRUGS (1)
  1. TRAZODONE HCL [Suspect]
     Dosage: (100 MG)

REACTIONS (4)
  - GAIT DISTURBANCE [None]
  - DRUG ADMINISTRATION ERROR [None]
  - MEMORY IMPAIRMENT [None]
  - SUICIDE ATTEMPT [None]
